FAERS Safety Report 9768358 (Version 1)
Quarter: 2013Q4

REPORT INFORMATION
  Report Type: Spontaneous
  Country: CA (occurrence: CA)
  Receive Date: 20131217
  Receipt Date: 20131217
  Transmission Date: 20140711
  Serious: Yes (Other)
  Sender: FDA-Public Use
  Company Number: CA-ABBVIE-13P-028-1180868-00

PATIENT
  Age: 16 Year
  Sex: Female

DRUGS (2)
  1. SYNTHROID [Suspect]
     Indication: HORMONE REPLACEMENT THERAPY
     Route: 048
  2. SYNTHROID [Suspect]
     Dates: start: 2013

REACTIONS (4)
  - Swelling face [Recovered/Resolved]
  - Reaction to preservatives [Unknown]
  - Rash [Recovered/Resolved]
  - Urticaria [Recovered/Resolved]
